FAERS Safety Report 7681870-0 (Version None)
Quarter: 2011Q3

REPORT INFORMATION
  Report Type: 
  Country: None (occurrence: None)
  Receive Date: 20110813
  Receipt Date: 20110801
  Transmission Date: 20111222
  Serious: Yes (Hospitalization, Other)
  Sender: FDA-Public Use
  Company Number: US-ELI_LILLY_AND_COMPANY-US201104001918

PATIENT
  Sex: Female

DRUGS (3)
  1. FORTEO [Suspect]
     Indication: OSTEOPOROSIS
     Dosage: 20 UG, QD
     Route: 065
     Dates: start: 20110201
  2. FORTEO [Suspect]
     Dosage: 20 UG, QD
     Route: 065
  3. FORTEO [Suspect]
     Dosage: 20 UG, QD
     Route: 065

REACTIONS (10)
  - PARANASAL SINUS HYPERSECRETION [None]
  - HOSPITALISATION [None]
  - INJURY [None]
  - BLOOD DISORDER [None]
  - BLOOD CALCIUM DECREASED [None]
  - POLYP [None]
  - GASTROOESOPHAGEAL REFLUX DISEASE [None]
  - HERNIA [None]
  - DIARRHOEA [None]
  - BLOOD POTASSIUM DECREASED [None]
